FAERS Safety Report 9556460 (Version 1)
Quarter: 2013Q3

REPORT INFORMATION
  Report Type: Spontaneous
  Country: US (occurrence: None)
  Receive Date: 20130724
  Receipt Date: 20130724
  Transmission Date: 20140515
  Serious: No
  Sender: FDA-Public Use
  Company Number: PHEH2013US006697

PATIENT
  Age: 28 Year
  Sex: Male

DRUGS (1)
  1. GILENYA (FINGOLIMOD) CAPSULE, 0.5MG [Suspect]
     Indication: MULTIPLE SCLEROSIS
     Dosage: 0.5 MG, QD, ORAL
     Route: 048
     Dates: start: 20130314

REACTIONS (6)
  - Photophobia [None]
  - Musculoskeletal stiffness [None]
  - Pollakiuria [None]
  - Abdominal discomfort [None]
  - Back pain [None]
  - Headache [None]
